FAERS Safety Report 14730635 (Version 1)
Quarter: 2018Q2

REPORT INFORMATION
  Report Type: Spontaneous
  Country: US (occurrence: US)
  Receive Date: 20180406
  Receipt Date: 20180406
  Transmission Date: 20180711
  Serious: Yes (Other)
  Sender: FDA-Public Use
  Company Number: PHEH2018US013114

PATIENT
  Sex: Male

DRUGS (2)
  1. LENVATINIB [Suspect]
     Active Substance: LENVATINIB
     Indication: THYROID CANCER
     Dosage: 14 MG, QD
     Route: 048
     Dates: start: 20180120
  2. AFINITOR [Suspect]
     Active Substance: EVEROLIMUS
     Indication: THYROID CANCER
     Dosage: 10 MG, QD
     Route: 048
     Dates: start: 20180328

REACTIONS (13)
  - Oesophageal discomfort [Unknown]
  - Thyroid cancer [Unknown]
  - Malignant neoplasm progression [Unknown]
  - Fatigue [Unknown]
  - Confusional state [Unknown]
  - Feeling abnormal [Unknown]
  - Depression [Unknown]
  - Nausea [Unknown]
  - Product use in unapproved indication [Unknown]
  - Anxiety [Unknown]
  - Diarrhoea [Unknown]
  - Weight decreased [Unknown]
  - Dyspepsia [Unknown]
